FAERS Safety Report 15745276 (Version 8)
Quarter: 2019Q2

REPORT INFORMATION
  Report Type: Report from Study
  Country: US (occurrence: US)
  Receive Date: 20181220
  Receipt Date: 20190610
  Transmission Date: 20190711
  Serious: Yes (Hospitalization, Other)
  Sender: FDA-Public Use
  Company Number: US-SA-2018SA341897

PATIENT
  Age: 69 Year
  Sex: Female

DRUGS (11)
  1. WARFARIN [Concomitant]
     Active Substance: WARFARIN
     Dosage: 2 DF, QD
     Route: 065
  2. CLONIDINE. [Concomitant]
     Active Substance: CLONIDINE
     Route: 065
  3. EZETIMIBE. [Concomitant]
     Active Substance: EZETIMIBE
     Route: 065
  4. BYSTOLIC [Concomitant]
     Active Substance: NEBIVOLOL HYDROCHLORIDE
     Route: 065
  5. INSULIN GLARGINE [Suspect]
     Active Substance: INSULIN GLARGINE
     Dosage: 27 U, QD
     Route: 058
  6. ENOXAPARIN SODIUM. [Suspect]
     Active Substance: ENOXAPARIN SODIUM
     Dosage: UNK
     Route: 058
  7. SPIRONOLACTONE. [Concomitant]
     Active Substance: SPIRONOLACTONE
     Route: 065
  8. FUROSEMIDE. [Concomitant]
     Active Substance: FUROSEMIDE
  9. INSULIN GLARGINE [Suspect]
     Active Substance: INSULIN GLARGINE
     Indication: TYPE 2 DIABETES MELLITUS
     Dosage: 30 U, QD
     Route: 058
     Dates: start: 20170615
  10. INSULIN GLULISINE [Suspect]
     Active Substance: INSULIN GLULISINE
     Dosage: 64 U, QID
     Route: 058
  11. INSULIN GLULISINE [Suspect]
     Active Substance: INSULIN GLULISINE
     Indication: TYPE 2 DIABETES MELLITUS
     Dosage: 24 U, QD
     Route: 058

REACTIONS (32)
  - Cognitive disorder [Recovered/Resolved]
  - Pain [Not Recovered/Not Resolved]
  - Vomiting [Recovered/Resolved]
  - Cardiac pacemaker insertion [Unknown]
  - Coronary artery occlusion [Recovered/Resolved]
  - Cataract [Recovered/Resolved]
  - Abdominal mass [Not Recovered/Not Resolved]
  - Asthenia [Not Recovered/Not Resolved]
  - Sleep deficit [Not Recovered/Not Resolved]
  - Rhinorrhoea [Unknown]
  - Stress [Not Recovered/Not Resolved]
  - Hospitalisation [Unknown]
  - Feeling abnormal [Recovered/Resolved]
  - Cough [Unknown]
  - Blood glucose abnormal [Unknown]
  - Decreased appetite [Not Recovered/Not Resolved]
  - Blood pressure abnormal [Unknown]
  - Intentional product use issue [Unknown]
  - Cardiac operation [Unknown]
  - Road traffic accident [Unknown]
  - Blindness transient [Recovered/Resolved]
  - Gangrene [Unknown]
  - Ligament sprain [Recovered/Resolved]
  - Weight decreased [Not Recovered/Not Resolved]
  - Carotid endarterectomy [Unknown]
  - Road traffic accident [Unknown]
  - Dysarthria [Recovered/Resolved]
  - Agraphia [Recovered/Resolved]
  - Cardiac disorder [Recovered/Resolved]
  - Dizziness [Recovered/Resolved]
  - Wrong technique in device usage process [Unknown]
  - Product dose omission [Unknown]

NARRATIVE: CASE EVENT DATE: 201603
